FAERS Safety Report 4640093-X (Version None)
Quarter: 2005Q2

REPORT INFORMATION
  Report Type: 
  Country: None (occurrence: None)
  Receive Date: 20050328
  Receipt Date: 20050203
  Transmission Date: 20051028
  Serious: No
  Sender: FDA-Public Use
  Company Number: USA050289935

PATIENT
  Age: 6 Year
  Sex: Male
  Weight: 19 kg

DRUGS (2)
  1. STRATTERA [Suspect]
     Indication: ATTENTION DEFICIT/HYPERACTIVITY DISORDER
     Dosage: 25 MG DAY
     Dates: start: 20041209
  2. CONCERTA [Concomitant]

REACTIONS (10)
  - ABDOMINAL PAIN UPPER [None]
  - APPETITE DISORDER [None]
  - DRUG INEFFECTIVE [None]
  - HEADACHE [None]
  - LYMPHADENOPATHY [None]
  - PAIN IN EXTREMITY [None]
  - PHARYNGOLARYNGEAL PAIN [None]
  - PYREXIA [None]
  - SLEEP DISORDER [None]
  - WEIGHT DECREASED [None]
